FAERS Safety Report 5754801-8 (Version None)
Quarter: 2008Q2

REPORT INFORMATION
  Report Type: 
  Country: None (occurrence: None)
  Receive Date: 20080527
  Receipt Date: 20080506
  Transmission Date: 20081010
  Serious: Yes (Other)
  Sender: FDA-Public Use
  Company Number: ENT 2008-0014

PATIENT
  Sex: Male

DRUGS (3)
  1. COMTAN [Suspect]
     Indication: PARKINSON'S DISEASE
     Dates: end: 20080205
  2. AMANTADINE HCL [Suspect]
     Dates: end: 20061101
  3. DARVOCET-N 100 [Suspect]

REACTIONS (7)
  - CONSTIPATION [None]
  - DYSKINESIA [None]
  - DYSPNOEA [None]
  - GAIT DISTURBANCE [None]
  - HALLUCINATION [None]
  - MOVEMENT DISORDER [None]
  - MYALGIA [None]
